FAERS Safety Report 21421724 (Version 2)
Quarter: 2022Q4

REPORT INFORMATION
  Report Type: Spontaneous
  Country: JP (occurrence: JP)
  Receive Date: 20221007
  Receipt Date: 20221018
  Transmission Date: 20230112
  Serious: Yes (Life-Threatening, Hospitalization, Other)
  Sender: FDA-Public Use
  Company Number: JP-MSD-2210JPN000311JAA

PATIENT
  Age: 79 Year
  Sex: Female

DRUGS (1)
  1. KEYTRUDA [Suspect]
     Active Substance: PEMBROLIZUMAB
     Indication: Ureteric cancer metastatic
     Dosage: UNK
     Route: 041

REACTIONS (3)
  - Bronchopulmonary aspergillosis [Recovering/Resolving]
  - Pulmonary toxicity [Recovering/Resolving]
  - Immune-mediated adrenal insufficiency [Recovering/Resolving]
